FAERS Safety Report 5236178-X (Version None)
Quarter: 2007Q1

REPORT INFORMATION
  Report Type: 
  Country: None (occurrence: None)
  Receive Date: 20061208
  Receipt Date: 20060123
  Transmission Date: 20070707
  Serious: Yes (Other)
  Sender: FDA-Public Use
  Company Number: 2006UW01218

PATIENT
  Age: 27 Year
  Sex: Male

DRUGS (5)
  1. CRESTOR [Suspect]
     Dosage: 10 MG QD PO
     Route: 048
     Dates: start: 20040910, end: 20050906
  2. TRICOR [Concomitant]
  3. VICODIN [Concomitant]
  4. ROBAXIN [Concomitant]
  5. TAMIFLU [Concomitant]

REACTIONS (2)
  - ALOPECIA [None]
  - ONYCHOMADESIS [None]
